FAERS Safety Report 5408637-8 (Version None)
Quarter: 2007Q3

REPORT INFORMATION
  Report Type: 
  Country: None (occurrence: None)
  Receive Date: 20070808
  Receipt Date: 20070731
  Transmission Date: 20080115
  Serious: Yes (Hospitalization)
  Sender: FDA-Public Use
  Company Number: HQWYE340102AUG07

PATIENT
  Sex: Female

DRUGS (20)
  1. SIROLIMUS [Suspect]
     Indication: PROPHYLAXIS AGAINST TRANSPLANT REJECTION
     Route: 048
     Dates: start: 20021126, end: 20021126
  2. SIROLIMUS [Suspect]
     Indication: IMMUNOSUPPRESSANT DRUG THERAPY
     Dosage: VARIABLE DOSAGE, 6MG TO 2 MG, DAILY
     Route: 048
     Dates: start: 20021127, end: 20030401
  3. SIROLIMUS [Suspect]
     Dosage: 1MG ALTERNATING WITH 2MG, DAILY
     Route: 048
     Dates: start: 20030416, end: 20061205
  4. MYCOPHENOLATE MOFETIL [Concomitant]
     Indication: IMMUNOSUPPRESSANT DRUG THERAPY
     Route: 065
     Dates: start: 20040108
  5. ADVAIR DISKUS 100/50 [Concomitant]
     Dosage: DOSE UNKNOWN
     Route: 065
     Dates: start: 20020604
  6. ALENDRONATE SODIUM [Concomitant]
     Dosage: DOSE UNKNOWN
     Route: 065
     Dates: start: 20020124, end: 20070110
  7. TUMS [Concomitant]
     Dosage: DOSE UNKNOWN
     Route: 065
     Dates: start: 20030116, end: 20070110
  8. MULTI-VITAMINS [Concomitant]
     Dosage: DOSE UNKNOWN
     Route: 065
     Dates: start: 20030116, end: 20070110
  9. CALTRATE D PLUS [Concomitant]
     Dosage: DOSE UNKNOWN
     Route: 065
     Dates: start: 19990806, end: 20070110
  10. EPOETIN ALFA [Concomitant]
     Dosage: DOSE UNKNOWN
     Route: 065
     Dates: start: 20031114
  11. COUMADIN [Concomitant]
     Dosage: DOSE UNKNOWN
     Route: 065
     Dates: start: 20041215, end: 20070110
  12. DIGOXIN [Concomitant]
     Dosage: DOSE UNKNOWN
     Route: 065
     Dates: start: 20041215
  13. PREDNISOLONE SODIUM PHOSPHATE [Concomitant]
     Dosage: DOSE UNKNOWN
     Route: 047
     Dates: start: 20041018, end: 20070110
  14. ZOLPIDEM TARTRATE [Concomitant]
     Dosage: DOSE UNKNOWN
     Route: 065
     Dates: start: 20050901, end: 20070110
  15. SPIRONOLACTONE [Concomitant]
     Indication: HYPERTENSION
     Route: 065
     Dates: start: 20030509
  16. CLONIDINE [Concomitant]
     Indication: HYPERTENSION
     Route: 065
     Dates: start: 20030601
  17. LASIX [Concomitant]
     Indication: HYPERTENSION
     Route: 065
     Dates: start: 20050119, end: 20070109
  18. ENALAPRIL MALEATE [Concomitant]
     Indication: HYPERTENSION
     Route: 065
     Dates: start: 20030420
  19. ATORVASTATIN CALCIUM [Concomitant]
     Indication: LIPIDS INCREASED
     Route: 065
     Dates: start: 20030221, end: 20070109
  20. PREDNISONE TAB [Concomitant]
     Indication: IMMUNOSUPPRESSANT DRUG THERAPY
     Route: 065
     Dates: start: 20061120

REACTIONS (8)
  - ABDOMINAL STRANGULATED HERNIA [None]
  - ATRIAL TACHYCARDIA [None]
  - DILATATION ATRIAL [None]
  - ENTEROCOCCAL INFECTION [None]
  - PERICARDIAL EFFUSION [None]
  - PNEUMONIA ASPIRATION [None]
  - SPUTUM CULTURE POSITIVE [None]
  - VENTRICULAR HYPERTROPHY [None]
